FAERS Safety Report 5848625-0 (Version None)
Quarter: 2008Q3

REPORT INFORMATION
  Report Type: 
  Country: None (occurrence: None)
  Receive Date: 20080818
  Receipt Date: 20080805
  Transmission Date: 20090109
  Serious: No
  Sender: FDA-Public Use
  Company Number: DE-ELI_LILLY_AND_COMPANY-DE200808001257

PATIENT
  Sex: Male

DRUGS (6)
  1. CYMBALTA [Suspect]
     Indication: DEPRESSION
     Dosage: 90 MG, DAILY (1/D)
     Route: 048
  2. METAMIZOL [Concomitant]
     Dosage: 20 GTT, 2/D DROPS
  3. LACTULOSE [Concomitant]
     Dosage: 5 ML, 3/D
  4. METOCLOPRAMIDE HYDROCHLORIDE [Concomitant]
     Dosage: 20 GTT, 3/D DROPS
  5. DELIX [Concomitant]
     Dosage: 5 MG, DAILY (1/D)
  6. REMERGIL [Concomitant]
     Dosage: 45 MG, DAILY (1/D)

REACTIONS (2)
  - GENERALISED OEDEMA [None]
  - RASH GENERALISED [None]
